FAERS Safety Report 8222733-1 (Version None)
Quarter: 2012Q1

REPORT INFORMATION
  Report Type: 
  Country: None (occurrence: None)
  Receive Date: 20120320
  Receipt Date: 20120312
  Transmission Date: 20120608
  Serious: Yes (Hospitalization, Other)
  Sender: FDA-Public Use
  Company Number: US-ASTRAZENECA-2011SE32214

PATIENT
  Age: 63 Year
  Sex: Female

DRUGS (9)
  1. BISMUTH SUBSALICYLATE [Concomitant]
     Dosage: USED PERIODICALLY IF NEEDED
  2. ROLAIDS [Concomitant]
     Dosage: USED PERIODICALLY IF NEEDED
  3. NEXIUM [Suspect]
     Indication: GASTROOESOPHAGEAL REFLUX DISEASE
     Dosage: SOMETIME TWICE A DAY ASS NEEDED
     Route: 048
     Dates: start: 20010101, end: 20110101
  4. TARKA [Concomitant]
     Indication: HYPERTENSION
  5. LYRICAL [Concomitant]
     Indication: FIBROMYALGIA
  6. AMITRIPTYLINE HCL [Concomitant]
     Indication: MIGRAINE
  7. PROLIA [Concomitant]
     Indication: BONE DISORDER
     Dosage: SHOT EVERY 6 MONTH
  8. NEXIUM [Suspect]
     Route: 048
     Dates: start: 20030101
  9. CITRACAL D3 [Concomitant]

REACTIONS (8)
  - ANKLE FRACTURE [None]
  - BONE DENSITY DECREASED [None]
  - RIB FRACTURE [None]
  - OSTEOPENIA [None]
  - BONE LOSS [None]
  - FOOT FRACTURE [None]
  - HYPOVITAMINOSIS [None]
  - EMOTIONAL DISTRESS [None]
